FAERS Safety Report 20334617 (Version 1)
Quarter: 2022Q1

REPORT INFORMATION
  Report Type: Spontaneous
  Country: US (occurrence: US)
  Receive Date: 20220114
  Receipt Date: 20220114
  Transmission Date: 20220424
  Serious: No
  Sender: FDA-Public Use
  Company Number: US-BIOVITRUM-2022US00185

PATIENT
  Age: 60 Year
  Sex: Female

DRUGS (8)
  1. KINERET [Suspect]
     Active Substance: ANAKINRA
     Indication: Cryopyrin associated periodic syndrome
     Route: 058
     Dates: start: 20160527
  2. KINERET [Suspect]
     Active Substance: ANAKINRA
     Indication: Myelitis
  3. BUPROPION [Concomitant]
     Active Substance: BUPROPION
  4. DALFAMPRIDINE [Concomitant]
     Active Substance: DALFAMPRIDINE
  5. DIAZEPAM [Concomitant]
     Active Substance: DIAZEPAM
  6. ESTROGENS [Concomitant]
     Active Substance: ESTROGENS
  7. RECLAST [Suspect]
     Active Substance: ZOLEDRONIC ACID
  8. TOPICAL HYDROCORTISONE [Concomitant]

REACTIONS (2)
  - Loss of personal independence in daily activities [Recovering/Resolving]
  - Off label use [Not Recovered/Not Resolved]

NARRATIVE: CASE EVENT DATE: 20160527
